FAERS Safety Report 4608618-8 (Version None)
Quarter: 2005Q1

REPORT INFORMATION
  Report Type: 
  Country: None (occurrence: None)
  Receive Date: 20050311
  Receipt Date: 20050311
  Transmission Date: 20050727
  Serious: Yes (Other)
  Sender: FDA-Public Use
  Company Number: None

PATIENT
  Sex: Female
  Weight: 33.9 kg

DRUGS (2)
  1. TEMOZOLOMIDE [Suspect]
     Dosage: 200 MG/M2/DOSE X 5 DAYS
     Dates: start: 20050217
  2. HYDROXYUREA [Concomitant]

REACTIONS (3)
  - ABDOMINAL PAIN UPPER [None]
  - DYSSTASIA [None]
  - GAMMA-GLUTAMYLTRANSFERASE INCREASED [None]
